FAERS Safety Report 13143514 (Version 1)
Quarter: 2017Q1

REPORT INFORMATION
  Report Type: Spontaneous
  Country: US (occurrence: US)
  Receive Date: 20170124
  Receipt Date: 20170124
  Transmission Date: 20170428
  Serious: No
  Sender: FDA-Public Use
  Company Number: None

PATIENT
  Age: 79 Year
  Sex: Female
  Weight: 90.8 kg

DRUGS (10)
  1. RESERVATROL [Concomitant]
  2. LISINPRIL [Concomitant]
  3. OXYBUTYNIN [Concomitant]
     Active Substance: OXYBUTYNIN
  4. OCUVITE [Concomitant]
     Active Substance: VITAMINS
  5. ELIQUIS [Concomitant]
     Active Substance: APIXABAN
  6. TYLENOL [Concomitant]
     Active Substance: ACETAMINOPHEN
  7. VIT. D3 [Concomitant]
  8. NORVASC [Concomitant]
     Active Substance: AMLODIPINE BESYLATE
  9. SOTALOL. [Suspect]
     Active Substance: SOTALOL
     Indication: ATRIAL FIBRILLATION
     Dosage: TWICE DAILY- 1/2 MOUTH
     Route: 048
     Dates: start: 20160810, end: 20161210
  10. VIT. B12 [Concomitant]

REACTIONS (3)
  - Atrial fibrillation [None]
  - Arthralgia [None]
  - Myalgia [None]

NARRATIVE: CASE EVENT DATE: 20151201
